FAERS Safety Report 15939914 (Version 3)
Quarter: 2019Q2

REPORT INFORMATION
  Report Type: Spontaneous
  Country: US (occurrence: US)
  Receive Date: 20190208
  Receipt Date: 20190424
  Transmission Date: 20190711
  Serious: Yes (Other)
  Sender: FDA-Public Use
  Company Number: US-ASTRAZENECA-2018SF14726

PATIENT
  Sex: Male
  Weight: 78 kg

DRUGS (28)
  1. BISOPROLOL [Concomitant]
     Active Substance: BISOPROLOL
  2. AZITHROMYCIN ANHYDROUS. [Concomitant]
     Active Substance: AZITHROMYCIN ANHYDROUS
  3. LISINOPRIL. [Concomitant]
     Active Substance: LISINOPRIL
  4. CEPHALEXIN. [Concomitant]
     Active Substance: CEPHALEXIN
  5. TRAZODONE [Concomitant]
     Active Substance: TRAZODONE HYDROCHLORIDE
  6. SIMVASTATIN. [Concomitant]
     Active Substance: SIMVASTATIN
  7. NEXIUM [Suspect]
     Active Substance: ESOMEPRAZOLE MAGNESIUM
     Route: 048
     Dates: start: 20100331, end: 20150102
  8. AMITRIPTYLINE [Concomitant]
     Active Substance: AMITRIPTYLINE
  9. ACYCLOVIR. [Concomitant]
     Active Substance: ACYCLOVIR
  10. NEXIUM [Suspect]
     Active Substance: ESOMEPRAZOLE MAGNESIUM
     Route: 048
     Dates: start: 201003, end: 201501
  11. TOBRADEX [Concomitant]
     Active Substance: DEXAMETHASONE\TOBRAMYCIN
  12. HYDROCODONE-APAP [Concomitant]
     Active Substance: ACETAMINOPHEN\HYDROCODONE
  13. CITALOPRAM [Concomitant]
     Active Substance: CITALOPRAM HYDROBROMIDE
  14. METHOCARBAMOL. [Concomitant]
     Active Substance: METHOCARBAMOL
  15. FINASTERIDE. [Concomitant]
     Active Substance: FINASTERIDE
  16. SERTRALINE [Concomitant]
     Active Substance: SERTRALINE HYDROCHLORIDE
  17. CIPROFLOXACIN. [Concomitant]
     Active Substance: CIPROFLOXACIN
  18. NEXIUM [Suspect]
     Active Substance: ESOMEPRAZOLE MAGNESIUM
     Dosage: 40.0MG UNKNOWN
     Route: 048
     Dates: start: 20100331
  19. NEXIUM 24HR [Suspect]
     Active Substance: ESOMEPRAZOLE MAGNESIUM
     Indication: GASTROOESOPHAGEAL REFLUX DISEASE
     Route: 048
     Dates: start: 20100331, end: 20150102
  20. ACETAMINOPHEN. [Concomitant]
     Active Substance: ACETAMINOPHEN
  21. GABAPENTIN. [Concomitant]
     Active Substance: GABAPENTIN
  22. ASPIRIN. [Concomitant]
     Active Substance: ASPIRIN
  23. TEMAZEPAM. [Concomitant]
     Active Substance: TEMAZEPAM
  24. FINASTERIDE. [Concomitant]
     Active Substance: FINASTERIDE
  25. CLONIDINE. [Concomitant]
     Active Substance: CLONIDINE
  26. NAPROXEN. [Concomitant]
     Active Substance: NAPROXEN
  27. GENTAK [Concomitant]
     Active Substance: GENTAMICIN SULFATE
  28. OLANZAPINE. [Concomitant]
     Active Substance: OLANZAPINE

REACTIONS (2)
  - Renal injury [Unknown]
  - Chronic kidney disease [Unknown]
